FAERS Safety Report 5858824-X (Version None)
Quarter: 2008Q3

REPORT INFORMATION
  Report Type: 
  Country: None (occurrence: None)
  Receive Date: 20080818
  Receipt Date: 20080522
  Transmission Date: 20090109
  Serious: No
  Sender: FDA-Public Use
  Company Number: WAES 0701USA04277

PATIENT
  Age: 84 Year
  Sex: Female

DRUGS (17)
  1. JANUVIA [Suspect]
     Indication: TYPE 2 DIABETES MELLITUS
     Dosage: 100 MG/DAILY/PO
     Route: 048
     Dates: start: 20061224
  2. ADVAIR DISKUS 100/50 [Concomitant]
  3. AVANDIA [Concomitant]
  4. AVAPRO [Concomitant]
  5. LANTUS [Concomitant]
  6. MUCINEX [Concomitant]
  7. NEXIUM [Concomitant]
  8. NORVASC [Concomitant]
  9. ZOLOFT [Concomitant]
  10. ASPIRIN [Concomitant]
  11. DIGOXIN [Concomitant]
  12. FLUTICASONE PROPIONATE [Concomitant]
  13. INSULIN [Concomitant]
  14. METFORMIN HCL [Concomitant]
  15. METOPROLOL TARTRATE [Concomitant]
  16. TRIAMTERENE [Concomitant]
  17. WARFARIN SODIUM [Concomitant]

REACTIONS (4)
  - COLD SWEAT [None]
  - HYPOTENSION [None]
  - LOWER RESPIRATORY TRACT INFECTION [None]
  - PRODUCTIVE COUGH [None]
